FAERS Safety Report 7512619-X (Version None)
Quarter: 2011Q2

REPORT INFORMATION
  Report Type: 
  Country: None (occurrence: None)
  Receive Date: 20110531
  Receipt Date: 20110526
  Transmission Date: 20111010
  Serious: Yes (Hospitalization)
  Sender: FDA-Public Use
  Company Number: DE-ROCHE-779663

PATIENT
  Sex: Male
  Weight: 82 kg

DRUGS (9)
  1. CALCIMAGON-D3 [Concomitant]
  2. RIBAVIRIN [Suspect]
     Route: 048
     Dates: start: 20110325
  3. LEVOTHYROXINE SODIUM [Concomitant]
  4. UDCA [Concomitant]
  5. MYFORTIC [Concomitant]
  6. SANDIMMUNE [Concomitant]
  7. RAMIPRIL [Concomitant]
  8. PEGINTERFERON ALFA-2A [Suspect]
     Route: 058
     Dates: start: 20110325
  9. PANTOPRAZOLE [Concomitant]

REACTIONS (2)
  - ANAEMIA [None]
  - GRANULOMA [None]
